FAERS Safety Report 21154965 (Version 19)
Quarter: 2025Q1

REPORT INFORMATION
  Report Type: Report from Study
  Country: US (occurrence: US)
  Receive Date: 20220801
  Receipt Date: 20250319
  Transmission Date: 20250409
  Serious: Yes (Hospitalization, Other)
  Sender: TAKEDA
  Company Number: US-TAKEDA-2022TUS050765

PATIENT
  Age: 72 Year
  Sex: Male
  Weight: 66 kg

DRUGS (36)
  1. HUMAN IMMUNOGLOBULIN G [Suspect]
     Active Substance: HUMAN IMMUNOGLOBULIN G
     Indication: Immunodeficiency common variable
     Dosage: 25 GRAM, Q4WEEKS
     Dates: start: 20220228
  2. HUMAN IMMUNOGLOBULIN G [Suspect]
     Active Substance: HUMAN IMMUNOGLOBULIN G
     Dosage: 25 GRAM, Q4WEEKS
  3. TYLENOL [Suspect]
     Active Substance: ACETAMINOPHEN
     Indication: Product used for unknown indication
  4. ACETAMINOPHEN [Concomitant]
     Active Substance: ACETAMINOPHEN
  5. LIDOCAINE [Concomitant]
     Active Substance: LIDOCAINE
  6. SODIUM CHLORIDE [Concomitant]
     Active Substance: SODIUM CHLORIDE
  7. EPINEPHRINE [Concomitant]
     Active Substance: EPINEPHRINE
  8. LEVALBUTEROL [Concomitant]
     Active Substance: LEVALBUTEROL
  9. CLOPIDOGREL [Concomitant]
     Active Substance: CLOPIDOGREL BISULFATE
  10. ASPIRIN [Concomitant]
     Active Substance: ASPIRIN
  11. ALPRAZOLAM [Concomitant]
     Active Substance: ALPRAZOLAM
  12. TAMSULOSIN [Concomitant]
     Active Substance: TAMSULOSIN
  13. ALLOPURINOL [Concomitant]
     Active Substance: ALLOPURINOL
  14. LISINOPRIL [Concomitant]
     Active Substance: LISINOPRIL
  15. ACETAMINOPHEN\HYDROCODONE [Concomitant]
     Active Substance: ACETAMINOPHEN\HYDROCODONE
  16. FLUTICASONE [Concomitant]
     Active Substance: FLUTICASONE
  17. OMEPRAZOLE [Concomitant]
     Active Substance: OMEPRAZOLE
  18. ROSUVASTATIN [Concomitant]
     Active Substance: ROSUVASTATIN
  19. ESCITALOPRAM [Concomitant]
     Active Substance: ESCITALOPRAM OXALATE
  20. AMLODIPINE [Concomitant]
     Active Substance: AMLODIPINE BESYLATE
  21. FOLIC ACID [Concomitant]
     Active Substance: FOLIC ACID
  22. METOPROLOL SUCCINATE [Concomitant]
     Active Substance: METOPROLOL SUCCINATE
  23. NAPROXEN [Concomitant]
     Active Substance: NAPROXEN
  24. FISH OIL [Concomitant]
     Active Substance: FISH OIL
  25. IRON [Concomitant]
     Active Substance: IRON
  26. BROVANA [Concomitant]
     Active Substance: ARFORMOTEROL TARTRATE
  27. ZINC [Concomitant]
     Active Substance: ZINC
  28. FLUTICASONE PROPIONATE [Concomitant]
     Active Substance: FLUTICASONE PROPIONATE
  29. ESCITALOPRAM OXALATE [Concomitant]
     Active Substance: ESCITALOPRAM OXALATE
  30. ROSUVASTATIN CALCIUM [Concomitant]
     Active Substance: ROSUVASTATIN CALCIUM
  31. TAMSULOSIN HYDROCHLORIDE [Concomitant]
     Active Substance: TAMSULOSIN HYDROCHLORIDE
  32. AMLODIPINE BESYLATE [Concomitant]
     Active Substance: AMLODIPINE BESYLATE
  33. VITAMIN D [Concomitant]
     Active Substance: VITAMIN D NOS
  34. DIPHENHYDRAMINE [Concomitant]
     Active Substance: DIPHENHYDRAMINE
  35. DIPHENHYDRAMINE HYDROCHLORIDE [Concomitant]
     Active Substance: DIPHENHYDRAMINE HYDROCHLORIDE
  36. VITAMIN D3 [Concomitant]
     Active Substance: CHOLECALCIFEROL

REACTIONS (21)
  - COVID-19 pneumonia [Unknown]
  - Pneumonia [Unknown]
  - Gallbladder disorder [Unknown]
  - Anaemia [Unknown]
  - Hypertension [Unknown]
  - Myocardial infarction [Unknown]
  - COVID-19 [Recovered/Resolved]
  - Muscle tightness [Recovered/Resolved]
  - Viral infection [Unknown]
  - Bacterial infection [Unknown]
  - Infusion related reaction [Unknown]
  - Incorrect drug administration rate [Recovered/Resolved]
  - Depression [Unknown]
  - Death of relative [Unknown]
  - Abdominal discomfort [Unknown]
  - Muscle spasms [Recovered/Resolved]
  - Tremor [Recovered/Resolved]
  - Back pain [Recovered/Resolved]
  - Chills [Recovered/Resolved]
  - Myalgia [Unknown]
  - Headache [Recovered/Resolved]

NARRATIVE: CASE EVENT DATE: 20231021
